FAERS Safety Report 4600175-5 (Version None)
Quarter: 2005Q1

REPORT INFORMATION
  Report Type: 
  Country: None (occurrence: None)
  Receive Date: 20050307
  Receipt Date: 20050221
  Transmission Date: 20050727
  Serious: Yes (Other)
  Sender: FDA-Public Use
  Company Number: GB-ROCHE-396132

PATIENT
  Age: 86 Year
  Sex: Male
  Weight: 57 kg

DRUGS (7)
  1. TAMIFLU [Suspect]
     Indication: INFLUENZA
     Route: 048
     Dates: start: 20050126, end: 20050131
  2. CITALOPRAM HYDROBROMIDE [Concomitant]
     Route: 065
  3. CLOTRIMAZOLE [Concomitant]
     Route: 065
  4. DIOCTYL [Concomitant]
     Route: 065
  5. FLIXONASE [Concomitant]
     Dosage: TAKES 2 SPRAYS IN EACH NOSTRIL DAILY
     Route: 065
  6. HYPROMELLOSE [Concomitant]
     Route: 047
  7. ACETAMINOPHEN [Concomitant]
     Dosage: DOSING FREQUENCY REPORTED AS 2 QDS (FOUR TIMES DAILY) PRN.
     Route: 065

REACTIONS (3)
  - AGITATION [None]
  - CONFUSIONAL STATE [None]
  - HAEMATURIA [None]
